FAERS Safety Report 7547368-5 (Version None)
Quarter: 2011Q2

REPORT INFORMATION
  Report Type: 
  Country: None (occurrence: None)
  Receive Date: 20110614
  Receipt Date: 20110610
  Transmission Date: 20111010
  Serious: Yes (Hospitalization)
  Sender: FDA-Public Use
  Company Number: CHPA2011TH07881

PATIENT
  Sex: Male

DRUGS (2)
  1. NICOTINE [Suspect]
     Dosage: 4 DF, QD
     Route: 048
     Dates: end: 20110601
  2. NICOTINE [Suspect]
     Indication: NICOTINE DEPENDENCE
     Dosage: 4 DF, QD
     Route: 048
     Dates: start: 20110501, end: 20110501

REACTIONS (4)
  - VOMITING [None]
  - PYREXIA [None]
  - BLOOD ELECTROLYTES DECREASED [None]
  - NAUSEA [None]
